FAERS Safety Report 11258543 (Version 4)
Quarter: 2015Q3

REPORT INFORMATION
  Report Type: Report from Study
  Country: US (occurrence: None)
  Receive Date: 20150709
  Receipt Date: 20150902
  Transmission Date: 20151125
  Serious: Yes (Other)
  Sender: FDA-Public Use
  Company Number: US-2015CRT000539

PATIENT
  Age: 68 Year
  Sex: Female
  Weight: 111.1 kg

DRUGS (7)
  1. BENICAR [Concomitant]
     Active Substance: OLMESARTAN MEDOXOMIL
  2. HYDROCHLOROTHIAZIDE. [Concomitant]
     Active Substance: HYDROCHLOROTHIAZIDE
  3. KORLYM [Suspect]
     Active Substance: MIFEPRISTONE
     Indication: CUSHING^S SYNDROME
     Route: 048
     Dates: start: 20150605
  4. BENADRYL [Suspect]
     Active Substance: DIPHENHYDRAMINE HYDROCHLORIDE
     Indication: PRODUCT USED FOR UNKNOWN INDICATION
     Dates: end: 201507
  5. PROZAC [Concomitant]
     Active Substance: FLUOXETINE HYDROCHLORIDE
  6. SUTENT [Concomitant]
     Active Substance: SUNITINIB MALATE
  7. TYLENOL PM [Suspect]
     Active Substance: ACETAMINOPHEN\DIPHENHYDRAMINE
     Indication: PRODUCT USED FOR UNKNOWN INDICATION
     Dates: end: 201507

REACTIONS (13)
  - Fall [None]
  - White blood cell count decreased [None]
  - Fatigue [None]
  - Inappropriate schedule of drug administration [None]
  - Therapy change [None]
  - Head injury [None]
  - Nightmare [None]
  - Blood potassium decreased [None]
  - Nausea [None]
  - Hallucination [None]
  - Rash maculo-papular [None]
  - Restlessness [None]
  - Vomiting [None]

NARRATIVE: CASE EVENT DATE: 2015
